FAERS Safety Report 13419880 (Version 1)
Quarter: 2017Q2

REPORT INFORMATION
  Report Type: Spontaneous
  Country: US (occurrence: US)
  Receive Date: 20170407
  Receipt Date: 20170407
  Transmission Date: 20170830
  Serious: No
  Sender: FDA-Public Use
  Company Number: US-JNJFOC-20170217776

PATIENT
  Sex: Male

DRUGS (4)
  1. TOPAMAX [Suspect]
     Active Substance: TOPIRAMATE
     Indication: ANXIETY
     Dosage: NDC 00045063965
     Route: 048
     Dates: start: 2007, end: 2007
  2. TOPAMAX [Suspect]
     Active Substance: TOPIRAMATE
     Indication: SEIZURE
     Dosage: NDC 00045063965
     Route: 048
     Dates: start: 2007, end: 2007
  3. TOPAMAX [Suspect]
     Active Substance: TOPIRAMATE
     Indication: SEIZURE
     Dosage: NDC 00045063165
     Route: 048
     Dates: start: 2007, end: 2007
  4. TOPAMAX [Suspect]
     Active Substance: TOPIRAMATE
     Indication: ANXIETY
     Dosage: NDC 00045063165
     Route: 048
     Dates: start: 2007, end: 2007

REACTIONS (1)
  - Adverse event [Unknown]
